FAERS Safety Report 9936841 (Version 1)
Quarter: 2014Q1

REPORT INFORMATION
  Report Type: Spontaneous
  Country: US (occurrence: None)
  Receive Date: 20140113
  Receipt Date: 20140113
  Transmission Date: 20141002
  Serious: Yes (Hospitalization)
  Sender: FDA-Public Use
  Company Number: 2013-001856

PATIENT
  Age: 36 Year
  Sex: Female

DRUGS (1)
  1. FEMCON FE [Suspect]
     Indication: CONTRACEPTION
     Dates: start: 2009, end: 2011

REACTIONS (3)
  - Cerebral venous thrombosis [None]
  - Headache [None]
  - Nervous system disorder [None]
